FAERS Safety Report 6065418-2 (Version None)
Quarter: 2009Q1

REPORT INFORMATION
  Report Type: 
  Country: None (occurrence: None)
  Receive Date: 20090130
  Receipt Date: 20090121
  Transmission Date: 20090719
  Serious: No
  Sender: FDA-Public Use
  Company Number: 2008SP025859

PATIENT
  Age: 62 Year
  Sex: Female

DRUGS (1)
  1. MOMETASONE FUROATE [Suspect]
     Indication: ECZEMA
     Dosage: TOP
     Route: 061

REACTIONS (7)
  - AURICULAR SWELLING [None]
  - DRUG HYPERSENSITIVITY [None]
  - DYSKINESIA [None]
  - EAR CANAL ERYTHEMA [None]
  - EAR CANAL STENOSIS [None]
  - EAR PRURITUS [None]
  - EXTERNAL EAR PAIN [None]
